FAERS Safety Report 7124151-6 (Version None)
Quarter: 2010Q4

REPORT INFORMATION
  Report Type: 
  Country: None (occurrence: None)
  Receive Date: 20101126
  Receipt Date: 20101116
  Transmission Date: 20110411
  Serious: Yes (Other)
  Sender: FDA-Public Use
  Company Number: PHFR2010GB05106

PATIENT
  Sex: Male

DRUGS (2)
  1. CLOZARIL [Suspect]
     Indication: SCHIZOPHRENIA
     Dosage: 200MG MANE AND 225MG NOCTE
     Route: 048
     Dates: start: 20100819
  2. CLOZARIL [Suspect]
     Dosage: 200MG MANE AND 250MG NOCTE
     Route: 048
     Dates: start: 20101027

REACTIONS (3)
  - CIRCULATORY COLLAPSE [None]
  - HERPES ZOSTER [None]
  - ORTHOSTATIC HYPOTENSION [None]
